FAERS Safety Report 24530385 (Version 1)
Quarter: 2024Q4

REPORT INFORMATION
  Report Type: Report from Study
  Country: US (occurrence: US)
  Receive Date: 20241021
  Receipt Date: 20241021
  Transmission Date: 20250115
  Serious: Yes (Other)
  Sender: ABBVIE
  Company Number: US-ABBVIE-5969443

PATIENT
  Sex: Female

DRUGS (1)
  1. RINVOQ [Suspect]
     Active Substance: UPADACITINIB
     Indication: Dermatitis atopic
     Dosage: STRENGTH: 15MG
     Route: 048
     Dates: end: 202410

REACTIONS (4)
  - Tibia fracture [Unknown]
  - Fall [Unknown]
  - Drug ineffective [Unknown]
  - Patella fracture [Unknown]

NARRATIVE: CASE EVENT DATE: 20240101
